FAERS Safety Report 18697370 (Version 2)
Quarter: 2021Q1

REPORT INFORMATION
  Report Type: Spontaneous
  Country: GB (occurrence: GB)
  Receive Date: 20210104
  Receipt Date: 20210316
  Transmission Date: 20210419
  Serious: Yes (Hospitalization)
  Sender: FDA-Public Use
  Company Number: GB-TEVA-2020-GB-1864305

PATIENT
  Age: 78 Year
  Sex: Female
  Weight: 84 kg

DRUGS (23)
  1. MEBEVERINE [Concomitant]
     Active Substance: MEBEVERINE
     Dosage: 405 MILLIGRAM DAILY;
  2. CETIRIZINE [Concomitant]
     Active Substance: CETIRIZINE HYDROCHLORIDE
     Dosage: 10 MILLIGRAM DAILY; IN THE MORNING
  3. DIPROBASE [Concomitant]
     Active Substance: CHLOROCRESOL
     Route: 061
  4. ROPINIROLE. [Concomitant]
     Active Substance: ROPINIROLE
     Indication: RESTLESS LEGS SYNDROME
     Dosage: 1.25 MILLIGRAM DAILY; AT 3PM
  5. SERETIDE [Concomitant]
     Active Substance: FLUTICASONE PROPIONATE\SALMETEROL XINAFOATE
     Dosage: PUFFS , UNIT DOSE : 4 DF
     Route: 055
  6. ESCITALOPRAM [Suspect]
     Active Substance: ESCITALOPRAM OXALATE
     Dosage: 10 MG
     Route: 048
  7. METRONIDAZOLE. [Concomitant]
     Active Substance: METRONIDAZOLE
     Dosage: 1200 MILLIGRAM DAILY;
     Dates: start: 20201120
  8. AMOXICILLIN. [Concomitant]
     Active Substance: AMOXICILLIN
     Dosage: 1500 MILLIGRAM DAILY;
     Dates: start: 20201126
  9. FUROSEMIDE. [Concomitant]
     Active Substance: FUROSEMIDE
     Dosage: 40 MILLIGRAM DAILY; IN THE MORNING
  10. ASPIRIN. [Suspect]
     Active Substance: ASPIRIN
     Dosage: 75 MG
     Route: 048
     Dates: end: 20201205
  11. BISOPROLOL [Concomitant]
     Active Substance: BISOPROLOL
     Dosage: 5 MILLIGRAM DAILY;
  12. CLOPIDOGREL [Suspect]
     Active Substance: CLOPIDOGREL BISULFATE
     Dosage: 75 MG
     Route: 048
     Dates: end: 20201205
  13. OPTIVE [Concomitant]
     Active Substance: CARBOXYMETHYLCELLULOSE SODIUM\GLYCERIN
     Dosage: 4 GTT DAILY;
  14. HYDROMOL OINTMENT [Concomitant]
     Active Substance: PARAFFIN\WAX, EMULSIFYING
  15. PARACETAMOL [Concomitant]
     Active Substance: ACETAMINOPHEN
     Dosage: 4 GRAM DAILY;
  16. SALBUTAMOL [Concomitant]
     Active Substance: ALBUTEROL
     Dosage: PUFFS , 2 DF
     Route: 055
  17. HYDROXOCOBALAMIN [Concomitant]
     Active Substance: HYDROXOCOBALAMIN
     Dosage: 1 G
     Dates: start: 20201111
  18. MOMETASONE [Concomitant]
     Active Substance: MOMETASONE
     Dosage: 1 DOSAGE FORMS DAILY;
     Route: 061
  19. HYDROMOL EMOLLIENT [Concomitant]
     Route: 061
  20. PROCHLORPERAZINE. [Concomitant]
     Active Substance: PROCHLORPERAZINE
     Dosage: 2 DOSAGE FORMS DAILY; 3?6MG
     Route: 048
  21. ATORVASTATIN [Concomitant]
     Active Substance: ATORVASTATIN
     Dosage: 80 MILLIGRAM DAILY; AT NIGHT
  22. DIORALYTE [Concomitant]
     Active Substance: CITRIC ACID MONOHYDRATE\DEXTROSE\POTASSIUM CATION\SODIUM CHLORIDE
     Dosage: 1 DF
  23. ZOPICLONE [Concomitant]
     Active Substance: ZOPICLONE
     Dosage: 3.75 MILLIGRAM DAILY; ONCE AT NIGHT

REACTIONS (4)
  - Upper gastrointestinal haemorrhage [Recovering/Resolving]
  - Haemoglobin decreased [Unknown]
  - Melaena [Unknown]
  - Coma scale abnormal [Unknown]
